FAERS Safety Report 20698166 (Version 1)
Quarter: 2022Q2

REPORT INFORMATION
  Report Type: Other
  Country: US (occurrence: None)
  Receive Date: 20220412
  Receipt Date: 20220412
  Transmission Date: 20220720
  Serious: Yes (Other)
  Sender: FDA-Public Use
  Company Number: US-ROCHE-3041572

PATIENT
  Sex: Male

DRUGS (4)
  1. OCREVUS [Suspect]
     Active Substance: OCRELIZUMAB
     Indication: Multiple sclerosis
     Dosage: LAST INFUSION ON /JUN/2021
     Route: 042
     Dates: start: 202006
  2. CHOLECALCIFEROL [Concomitant]
     Active Substance: CHOLECALCIFEROL
  3. LISINOPRIL [Concomitant]
     Active Substance: LISINOPRIL
  4. HERBALS\SAW PALMETTO [Concomitant]
     Active Substance: HERBALS\SAW PALMETTO

REACTIONS (10)
  - Magnetic resonance imaging abnormal [Unknown]
  - Intervertebral discitis [Unknown]
  - Osteomyelitis [Unknown]
  - Nocturia [Unknown]
  - Micturition urgency [Unknown]
  - Urinary hesitation [Unknown]
  - C-reactive protein increased [Unknown]
  - White blood cell count decreased [Unknown]
  - Mean cell haemoglobin increased [Unknown]
  - Neutrophil count decreased [Unknown]
